FAERS Safety Report 24630130 (Version 3)
Quarter: 2024Q4

REPORT INFORMATION
  Report Type: Report from Study
  Country: US (occurrence: US)
  Receive Date: 20241118
  Receipt Date: 20241204
  Transmission Date: 20250114
  Serious: Yes (Death, Hospitalization, Other)
  Sender: TAKEDA
  Company Number: US-TAKEDA-2024TUS115421

PATIENT
  Age: 60 Year
  Sex: Male
  Weight: 134.2 kg

DRUGS (4)
  1. FRUQUINTINIB [Suspect]
     Active Substance: FRUQUINTINIB
     Indication: Rectal cancer
     Dosage: 5 MILLIGRAM
  2. ELIQUIS [Concomitant]
     Active Substance: APIXABAN
     Dosage: UNK
  3. FLOMAX [Concomitant]
     Active Substance: TAMSULOSIN HYDROCHLORIDE
     Dosage: UNK
  4. METOPROLOL [Concomitant]
     Active Substance: METOPROLOL
     Dosage: UNK

REACTIONS (2)
  - Death [Fatal]
  - Thrombosis [Unknown]

NARRATIVE: CASE EVENT DATE: 20241122
